FAERS Safety Report 19878739 (Version 1)
Quarter: 2021Q3

REPORT INFORMATION
  Report Type: Spontaneous
  Country: US (occurrence: US)
  Receive Date: 20210924
  Receipt Date: 20210924
  Transmission Date: 20211014
  Serious: No
  Sender: FDA-Public Use
  Company Number: US-NEBO-PC007329

PATIENT
  Age: 20 Year
  Sex: Female

DRUGS (2)
  1. SOLU?MEDROL [Concomitant]
     Active Substance: METHYLPREDNISOLONE SODIUM SUCCINATE
     Indication: PREMEDICATION
  2. MONOFERRIC [Suspect]
     Active Substance: FERRIC DERISOMALTOSE
     Indication: PRODUCT USED FOR UNKNOWN INDICATION
     Route: 042
     Dates: start: 20210826, end: 20210826

REACTIONS (4)
  - Rash [Unknown]
  - Back pain [Unknown]
  - Arthralgia [Unknown]
  - Skin reaction [Unknown]

NARRATIVE: CASE EVENT DATE: 20210828
